FAERS Safety Report 22090145 (Version 1)
Quarter: 2023Q1

REPORT INFORMATION
  Report Type: Spontaneous
  Country: US (occurrence: None)
  Receive Date: 20230313
  Receipt Date: 20230313
  Transmission Date: 20230418
  Serious: Yes (Hospitalization, Other)
  Sender: FDA-Public Use
  Company Number: None

PATIENT
  Age: 43 Year
  Sex: Male
  Weight: 85 kg

DRUGS (2)
  1. INVEGA SUSTENNA [Suspect]
     Active Substance: PALIPERIDONE PALMITATE
     Indication: Hypomania
     Dates: start: 20220414
  2. ZYPREXA [Suspect]
     Active Substance: OLANZAPINE

REACTIONS (18)
  - Product communication issue [None]
  - Asthenia [None]
  - Movement disorder [None]
  - Bruxism [None]
  - Muscular weakness [None]
  - Musculoskeletal stiffness [None]
  - Tremor [None]
  - Fatigue [None]
  - Somnolence [None]
  - Insomnia [None]
  - Sleep disorder [None]
  - Cognitive disorder [None]
  - Anhedonia [None]
  - Libido decreased [None]
  - Sexual dysfunction [None]
  - Dry eye [None]
  - Suicidal ideation [None]
  - Impaired quality of life [None]

NARRATIVE: CASE EVENT DATE: 20220414
